FAERS Safety Report 19488367 (Version 2)
Quarter: 2021Q3

REPORT INFORMATION
  Report Type: Spontaneous
  Country: US (occurrence: US)
  Receive Date: 20210703
  Receipt Date: 20210708
  Transmission Date: 20211014
  Serious: No
  Sender: FDA-Public Use
  Company Number: US-TEVA-2021-US-1925574

PATIENT
  Sex: Female

DRUGS (2)
  1. AUSTEDO [Suspect]
     Active Substance: DEUTETRABENAZINE
     Indication: HUNTINGTON^S DISEASE
     Dosage: 24MG IN THE MORNING AND 32MG IN THE EVENING
     Route: 065
     Dates: start: 20200921
  2. AUSTEDO [Suspect]
     Active Substance: DEUTETRABENAZINE
     Dosage: 36 MILLIGRAM DAILY;
     Route: 065
     Dates: start: 202008

REACTIONS (6)
  - Aggression [Unknown]
  - Drug ineffective [Unknown]
  - Dyskinesia [Unknown]
  - Decreased appetite [Unknown]
  - Therapeutic response shortened [Unknown]
  - Overdose [Unknown]
